FAERS Safety Report 4590145-8 (Version None)
Quarter: 2005Q1

REPORT INFORMATION
  Report Type: 
  Country: None (occurrence: None)
  Receive Date: 20050218
  Receipt Date: 20050218
  Transmission Date: 20050727
  Serious: Yes (Other)
  Sender: FDA-Public Use
  Company Number: None

PATIENT
  Age: 65 Year
  Sex: Male

DRUGS (2)
  1. HYDROXYCHLOROQUINE TABS HCG [Suspect]
     Indication: RHEUMATOID ARTHRITIS
     Dosage: ONE TABLET BY MOUTH DAILY
     Route: 048
  2. HYDROXYCHLOROQUINE TABS HCG [Suspect]
     Indication: RHEUMATOID ARTHRITIS
     Dosage: ONE TABLET BY MOUTH DAILY
     Route: 048

REACTIONS (3)
  - JOINT SWELLING [None]
  - MOBILITY DECREASED [None]
  - PHARMACEUTICAL PRODUCT COMPLAINT [None]
